FAERS Safety Report 17897979 (Version 1)
Quarter: 2020Q2

REPORT INFORMATION
  Report Type: Spontaneous
  Country: US (occurrence: US)
  Receive Date: 20200616
  Receipt Date: 20200616
  Transmission Date: 20200714
  Serious: No
  Sender: FDA-Public Use
  Company Number: US-JNJFOC-20200615159

PATIENT
  Sex: Male

DRUGS (1)
  1. MENS ROGAINE EXTRA STRENGTH [Suspect]
     Active Substance: MINOXIDIL
     Indication: STRESS
     Dosage: TWICE DAILY 11AM AND ABOUT 9-10 PM
     Route: 061

REACTIONS (2)
  - Off label use [Unknown]
  - Product use in unapproved indication [Unknown]
